FAERS Safety Report 9855538 (Version 2)
Quarter: 2014Q1

REPORT INFORMATION
  Report Type: Spontaneous
  Country: US (occurrence: US)
  Receive Date: 20140130
  Receipt Date: 20140310
  Transmission Date: 20141002
  Serious: Yes (Other)
  Sender: FDA-Public Use
  Company Number: US-ASTELLAS-2014US000857

PATIENT
  Sex: Male

DRUGS (10)
  1. PROGRAF [Suspect]
     Indication: RENAL TRANSPLANT
     Dosage: 1 MG, BID
     Route: 048
     Dates: start: 200208
  2. PROGRAF [Suspect]
     Dosage: 2 MG, BID
     Route: 048
     Dates: start: 20140118
  3. VESICARE [Concomitant]
     Indication: PRODUCT USED FOR UNKNOWN INDICATION
     Dosage: UNK
     Route: 065
  4. COZAAR [Concomitant]
     Indication: PRODUCT USED FOR UNKNOWN INDICATION
     Dosage: UNK
     Route: 065
  5. LOVAZA [Concomitant]
     Indication: PRODUCT USED FOR UNKNOWN INDICATION
     Dosage: UNK
     Route: 065
  6. CALTRATE                           /00944201/ [Concomitant]
     Indication: PRODUCT USED FOR UNKNOWN INDICATION
     Dosage: UNK
     Route: 065
  7. PEPCID                             /00706001/ [Concomitant]
     Indication: PRODUCT USED FOR UNKNOWN INDICATION
     Dosage: UNK
     Route: 065
  8. PREDNISONE [Concomitant]
     Indication: PRODUCT USED FOR UNKNOWN INDICATION
     Dosage: UNK
     Route: 065
  9. XANAX [Concomitant]
     Indication: PRODUCT USED FOR UNKNOWN INDICATION
     Dosage: UNK
     Route: 065
  10. TRAMADOL [Concomitant]
     Indication: PRODUCT USED FOR UNKNOWN INDICATION
     Dosage: UNK
     Route: 065

REACTIONS (3)
  - Parkinsonism [Not Recovered/Not Resolved]
  - Immunosuppressant drug level decreased [Unknown]
  - Prostate cancer recurrent [Not Recovered/Not Resolved]
